FAERS Safety Report 6743095-2 (Version None)
Quarter: 2010Q2

REPORT INFORMATION
  Report Type: 
  Country: None (occurrence: None)
  Receive Date: 20100525
  Receipt Date: 20100511
  Transmission Date: 20101027
  Serious: Yes (Death)
  Sender: FDA-Public Use
  Company Number: A-CH2010-34418

PATIENT
  Age: 20 Month
  Sex: Male
  Weight: 7.3 kg

DRUGS (1)
  1. ZAVESCA [Suspect]
     Indication: GAUCHER'S DISEASE
     Dosage: 33 MG, TID, ORAL
     Route: 048
     Dates: start: 20090821

REACTIONS (3)
  - DISEASE PROGRESSION [None]
  - GAUCHER'S DISEASE [None]
  - OFF LABEL USE [None]
